FAERS Safety Report 17114723 (Version 3)
Quarter: 2020Q1

REPORT INFORMATION
  Report Type: Spontaneous
  Country: US (occurrence: US)
  Receive Date: 20191205
  Receipt Date: 20200122
  Transmission Date: 20200409
  Serious: Yes (Hospitalization)
  Sender: FDA-Public Use
  Company Number: US-UPSHER-SMITH LABORATORIES, LLC-2019USL00871

PATIENT
  Age: 4 Year
  Sex: Male
  Weight: 14.6 kg

DRUGS (4)
  1. CLOBAZAM. [Suspect]
     Active Substance: CLOBAZAM
     Dosage: 7.5 MG, 1X/DAY IN THE MORNING
     Route: 048
     Dates: start: 20191224
  2. CLOBAZAM. [Suspect]
     Active Substance: CLOBAZAM
     Indication: SEIZURE
     Dosage: 5 MG, 2X/DAY (MORNING AND NIGHT)
     Route: 048
     Dates: start: 201905, end: 20191115
  3. CLOBAZAM. [Suspect]
     Active Substance: CLOBAZAM
     Dosage: 10 MG, 1X/DAY AT NIGHT
     Route: 048
     Dates: start: 20191224
  4. CLOBAZAM. [Suspect]
     Active Substance: CLOBAZAM
     Dosage: 7.5 MG, 2X/DAY (MORNING AND NIGHT)
     Route: 048
     Dates: start: 20191116, end: 20191223

REACTIONS (2)
  - Seizure [Unknown]
  - Unevaluable event [Not Recovered/Not Resolved]

NARRATIVE: CASE EVENT DATE: 20191114
